FAERS Safety Report 9609652 (Version 2)
Quarter: 2013Q4

REPORT INFORMATION
  Report Type: Spontaneous
  Country: US (occurrence: US)
  Receive Date: 20131009
  Receipt Date: 20131009
  Transmission Date: 20140711
  Serious: Yes (Other)
  Sender: FDA-Public Use
  Company Number: US-NAPPMUNDI-USA-2012-0095145

PATIENT
  Sex: Male
  Weight: 95.69 kg

DRUGS (1)
  1. BUTRANS [Suspect]
     Indication: INTERVERTEBRAL DISC PROTRUSION
     Dosage: 10 MCG/HR, UNK
     Route: 062
     Dates: start: 20121012, end: 20121026

REACTIONS (2)
  - Swollen tongue [Recovered/Resolved]
  - Angioedema [Unknown]
